FAERS Safety Report 15515503 (Version 3)
Quarter: 2019Q1

REPORT INFORMATION
  Report Type: Spontaneous
  Country: US (occurrence: US)
  Receive Date: 20181017
  Receipt Date: 20190204
  Transmission Date: 20190417
  Serious: No
  Sender: FDA-Public Use
  Company Number: US-HTU-2018US017586

PATIENT
  Sex: Female

DRUGS (3)
  1. VALCHLOR [Suspect]
     Active Substance: MECHLORETHAMINE
     Dosage: THIN FILM NIGHTLY, IF NO IRRITATION
  2. VALCHLOR [Suspect]
     Active Substance: MECHLORETHAMINE
     Indication: MYCOSIS FUNGOIDES
     Dosage: UNK, UNKNOWN
     Route: 061
     Dates: start: 20180827
  3. VALCHLOR [Suspect]
     Active Substance: MECHLORETHAMINE
     Dosage: THIN FILM EVERY OTHER NIGHT, FOR TWO WEEKS

REACTIONS (6)
  - Application site erythema [Not Recovered/Not Resolved]
  - Haemorrhage [Unknown]
  - Intentional dose omission [Unknown]
  - Application site vesicles [Not Recovered/Not Resolved]
  - Application site irritation [Not Recovered/Not Resolved]
  - Alopecia [Unknown]
